FAERS Safety Report 12640080 (Version 1)
Quarter: 2016Q3

REPORT INFORMATION
  Report Type: Spontaneous
  Country: FR (occurrence: FR)
  Receive Date: 20160810
  Receipt Date: 20160810
  Transmission Date: 20161109
  Serious: Yes (Hospitalization)
  Sender: FDA-Public Use
  Company Number: FR-ROCHE-1810974

PATIENT
  Age: 16 Year
  Sex: Female

DRUGS (10)
  1. ESIDREX [Concomitant]
     Active Substance: HYDROCHLOROTHIAZIDE
     Route: 065
     Dates: end: 20150216
  2. CEFOTAXIME [Concomitant]
     Active Substance: CEFOTAXIME SODIUM
  3. ROCEPHINE [Suspect]
     Active Substance: CEFTRIAXONE SODIUM
     Indication: LYME DISEASE
     Route: 065
     Dates: start: 20150211
  4. RAMIPRIL. [Concomitant]
     Active Substance: RAMIPRIL
  5. CEFALEXINE [Concomitant]
     Active Substance: CEPHALEXIN
  6. ZINAT [Concomitant]
     Active Substance: CEFUROXIME AXETIL
  7. DEROXAT [Concomitant]
     Active Substance: PAROXETINE HYDROCHLORIDE
     Route: 065
  8. CEFRADINE [Concomitant]
     Active Substance: CEPHRADINE
  9. AMOXICILLIN. [Concomitant]
     Active Substance: AMOXICILLIN
  10. POLARAMINE [Concomitant]
     Active Substance: DEXCHLORPHENIRAMINE MALEATE

REACTIONS (5)
  - Dermatitis allergic [Recovered/Resolved]
  - Cell death [Recovered/Resolved]
  - Leukopenia [Recovered/Resolved]
  - Thrombocytopenia [Recovered/Resolved]
  - Neutropenia [Recovered/Resolved]

NARRATIVE: CASE EVENT DATE: 20150219
